FAERS Safety Report 23893083 (Version 3)
Quarter: 2024Q3

REPORT INFORMATION
  Report Type: Report from Study
  Country: CA (occurrence: CA)
  Receive Date: 20240524
  Receipt Date: 20240723
  Transmission Date: 20241016
  Serious: Yes (Hospitalization, Other)
  Sender: TAKEDA
  Company Number: CA-TAKEDA-2024TUS049800

PATIENT
  Age: 72 Year
  Sex: Male
  Weight: 60 kg

DRUGS (3)
  1. MARIBAVIR [Suspect]
     Active Substance: MARIBAVIR
     Indication: Cytomegalovirus colitis
     Dosage: UNK
     Route: 065
     Dates: start: 20240209
  2. MARIBAVIR [Suspect]
     Active Substance: MARIBAVIR
     Dosage: UNK UNK, BID
     Route: 048
     Dates: end: 20240417
  3. FLUCONAZOLE [Concomitant]
     Active Substance: FLUCONAZOLE
     Indication: Oesophageal candidiasis
     Dosage: 200 MILLIGRAM, QD
     Route: 048
     Dates: start: 20240405, end: 20240421

REACTIONS (8)
  - Viral load decreased [Recovered/Resolved]
  - Blood bilirubin increased [Recovered/Resolved]
  - Blood alkaline phosphatase increased [Recovered/Resolved]
  - Liver function test increased [Recovered/Resolved]
  - Hepatic enzyme increased [Not Recovered/Not Resolved]
  - Hyperbilirubinaemia [Not Recovered/Not Resolved]
  - Cholestasis [Unknown]
  - Drug resistance [Recovered/Resolved]

NARRATIVE: CASE EVENT DATE: 20240420
